FAERS Safety Report 14340063 (Version 3)
Quarter: 2018Q1

REPORT INFORMATION
  Report Type: Report from Study
  Country: US (occurrence: US)
  Receive Date: 20171231
  Receipt Date: 20180116
  Transmission Date: 20180509
  Serious: No
  Sender: FDA-Public Use
  Company Number: US-AMGEN-USASP2017191880

PATIENT
  Age: 47 Year
  Sex: Female

DRUGS (2)
  1. ENBREL [Suspect]
     Active Substance: ETANERCEPT
     Dosage: 50 MG, 2 TIMES/WK
     Route: 058
  2. ENBREL [Suspect]
     Active Substance: ETANERCEPT
     Indication: PSORIASIS
     Dosage: 50 MG, QWK
     Route: 058
     Dates: start: 201712

REACTIONS (8)
  - Nasopharyngitis [Not Recovered/Not Resolved]
  - Genital herpes [Recovering/Resolving]
  - Exposure to communicable disease [Unknown]
  - Dizziness [Not Recovered/Not Resolved]
  - Headache [Unknown]
  - Abdominal pain upper [Unknown]
  - Inappropriate schedule of drug administration [Unknown]
  - Injection site pain [Unknown]

NARRATIVE: CASE EVENT DATE: 201712
